FAERS Safety Report 6599802-5 (Version None)
Quarter: 2010Q1

REPORT INFORMATION
  Report Type: 
  Country: None (occurrence: None)
  Receive Date: 20100217
  Receipt Date: 20100204
  Transmission Date: 20100710
  Serious: Yes (Other)
  Sender: FDA-Public Use
  Company Number: MC201000042

PATIENT
  Age: 88 Year
  Sex: Female

DRUGS (2)
  1. ANGIOMAX [Suspect]
     Indication: PERCUTANEOUS CORONARY INTERVENTION
     Dosage: BOLUS, INTRA-ARTERIAL
     Route: 013
     Dates: start: 20100101, end: 20100101
  2. UNFRACTIONATED HEPARIN (HEPARIN) [Concomitant]

REACTIONS (5)
  - ACUTE MYOCARDIAL INFARCTION [None]
  - CORONARY ARTERY DISEASE [None]
  - INCORRECT ROUTE OF DRUG ADMINISTRATION [None]
  - INTRACARDIAC THROMBUS [None]
  - RETROPERITONEAL HAEMATOMA [None]
